FAERS Safety Report 5103160-2 (Version None)
Quarter: 2006Q3

REPORT INFORMATION
  Report Type: 
  Country: None (occurrence: None)
  Receive Date: 20060908
  Receipt Date: 20060908
  Transmission Date: 20061208
  Serious: No
  Sender: FDA-Public Use
  Company Number: None

PATIENT
  Sex: Male
  Weight: 86.1834 kg

DRUGS (6)
  1. FAZACLO 75 MG DAILY ALAMO (25 MG TABS) [Suspect]
     Indication: SCHIZOPHRENIA
     Dosage: 25 MG Q AM 50 MG QHS PO
     Route: 048
     Dates: start: 20060817, end: 20060824
  2. ATIVAN [Concomitant]
  3. HALDOL SOLUTAB [Concomitant]
  4. COGENTIN [Concomitant]
  5. ANTACID TAB [Concomitant]
  6. INDERAL [Concomitant]

REACTIONS (1)
  - ELECTROCARDIOGRAM T WAVE INVERSION [None]
